FAERS Safety Report 7769797-7 (Version None)
Quarter: 2011Q3

REPORT INFORMATION
  Report Type: 
  Country: None (occurrence: None)
  Receive Date: 20110922
  Receipt Date: 20100826
  Transmission Date: 20111222
  Serious: Yes (Hospitalization)
  Sender: FDA-Public Use
  Company Number: US-ASTRAZENECA-2007UW24318

PATIENT
  Age: 21277 Day
  Sex: Male
  Weight: 101.6 kg

DRUGS (12)
  1. SEROQUEL [Suspect]
     Route: 048
     Dates: start: 20060731
  2. SEROQUEL [Suspect]
     Route: 048
     Dates: start: 20050822
  3. LEVOTHROID [Concomitant]
     Dates: start: 20010802
  4. SEROQUEL [Suspect]
     Route: 048
     Dates: start: 20050902
  5. LOPRESSOR [Concomitant]
     Route: 048
     Dates: start: 20060727
  6. SEROQUEL [Suspect]
     Indication: ANXIETY
     Dosage: 800 MG- 1000 MG
     Route: 048
     Dates: start: 20050801, end: 20060301
  7. MAXZIDE [Concomitant]
     Dosage: 37.5 / 25 MG ONE EVERY MORNING
     Route: 048
     Dates: start: 20050821
  8. LISINOPRIL [Concomitant]
     Dosage: 10 BID
     Dates: start: 20060731
  9. LOPRESSOR [Concomitant]
     Dosage: 25 BID
     Dates: start: 20060731
  10. HYTRIN [Concomitant]
     Route: 048
     Dates: start: 20070313
  11. LISINOPRIL [Concomitant]
     Route: 048
     Dates: start: 20060821
  12. ASPIRIN [Concomitant]
     Route: 048
     Dates: start: 20030723

REACTIONS (5)
  - TYPE 1 DIABETES MELLITUS [None]
  - TYPE 2 DIABETES MELLITUS [None]
  - DIABETES MELLITUS [None]
  - HYPERGLYCAEMIC HYPEROSMOLAR NONKETOTIC SYNDROME [None]
  - DIABETES MELLITUS INADEQUATE CONTROL [None]
